FAERS Safety Report 4834245-3 (Version None)
Quarter: 2005Q4

REPORT INFORMATION
  Report Type: 
  Country: None (occurrence: None)
  Receive Date: 20051122
  Receipt Date: 20051115
  Transmission Date: 20060501
  Serious: Yes (Hospitalization)
  Sender: FDA-Public Use
  Company Number: BE-MERCK-0511BEL00006

PATIENT
  Age: 75 Year
  Sex: Male

DRUGS (3)
  1. COZAAR [Suspect]
     Route: 048
     Dates: start: 19980122
  2. SOTALOL HCL [Concomitant]
     Indication: ATRIAL FIBRILLATION
     Route: 048
     Dates: end: 20050101
  3. HYTRIN [Concomitant]
     Indication: BENIGN PROSTATIC HYPERPLASIA
     Route: 048

REACTIONS (1)
  - MITRAL VALVE STENOSIS [None]
